FAERS Safety Report 7337096-3 (Version None)
Quarter: 2011Q1

REPORT INFORMATION
  Report Type: 
  Country: None (occurrence: None)
  Receive Date: 20110224
  Receipt Date: 20110210
  Transmission Date: 20110831
  Serious: Yes (Hospitalization)
  Sender: FDA-Public Use
  Company Number: 2011P1004392

PATIENT
  Age: 71 Year
  Sex: Female
  Weight: 56.6996 kg

DRUGS (2)
  1. FENTANYL [Suspect]
     Indication: PAIN
     Dosage: 2 PATCHES' Q72H; TDER
     Route: 062
  2. PREDNISONE (NO PREF. NAME) [Suspect]

REACTIONS (7)
  - HEART RATE DECREASED [None]
  - DYSPNOEA [None]
  - PNEUMONIA [None]
  - DYSSTASIA [None]
  - BLOOD GLUCOSE INCREASED [None]
  - FATIGUE [None]
  - FALL [None]
